FAERS Safety Report 9001743 (Version 1)
Quarter: 2013Q1

REPORT INFORMATION
  Report Type: Spontaneous
  Country: US (occurrence: US)
  Receive Date: 20130107
  Receipt Date: 20130107
  Transmission Date: 20140127
  Serious: No
  Sender: FDA-Public Use
  Company Number: US-ASTELLAS-2012US012558

PATIENT
  Age: 70 Year
  Sex: Female

DRUGS (2)
  1. MYRBETRIQ [Suspect]
     Indication: CYSTITIS
     Dosage: UNK
     Route: 065
  2. MYRBETRIQ [Suspect]
     Indication: BLADDER PAIN

REACTIONS (1)
  - Off label use [Unknown]
